FAERS Safety Report 14924247 (Version 1)
Quarter: 2018Q2

REPORT INFORMATION
  Report Type: Other
  Country: PT (occurrence: PT)
  Receive Date: 20180522
  Receipt Date: 20180522
  Transmission Date: 20180711
  Serious: Yes (Life-Threatening, Hospitalization)
  Sender: FDA-Public Use
  Company Number: PT-NOSTRUM LABORATORIES, INC.-2048238

PATIENT
  Age: 77 Year
  Sex: Female

DRUGS (1)
  1. NITROFURANTOIN. [Suspect]
     Active Substance: NITROFURANTOIN
     Indication: URINARY TRACT INFECTION
     Route: 048

REACTIONS (4)
  - Rash maculo-papular [None]
  - Alveolitis allergic [Recovered/Resolved]
  - Anaemia [Unknown]
  - Drug reaction with eosinophilia and systemic symptoms [Recovered/Resolved]
